FAERS Safety Report 24412141 (Version 3)
Quarter: 2024Q4

REPORT INFORMATION
  Report Type: Spontaneous
  Country: US (occurrence: US)
  Receive Date: 20241008
  Receipt Date: 20241104
  Transmission Date: 20250114
  Serious: Yes (Other)
  Sender: ORGANON
  Company Number: US-ORGANON-O2410USA000417

PATIENT
  Age: 45 Year
  Sex: Female
  Weight: 78.458 kg

DRUGS (1)
  1. NEXPLANON [Suspect]
     Active Substance: ETONOGESTREL
     Indication: Contraception
     Dosage: 1 IMPLANT (68 MILLIGRAM) (LEFT UPPER ARM) (FOR 3 YEARS)
     Route: 023
     Dates: start: 20240819, end: 20240829

REACTIONS (8)
  - Device dislocation [Recovered/Resolved]
  - Device expulsion [Recovered/Resolved]
  - Implant site erythema [Recovered/Resolved]
  - Implant site pain [Recovered/Resolved]
  - Implant site irritation [Recovered/Resolved]
  - Implant site warmth [Recovered/Resolved]
  - Implant site haemorrhage [Recovered/Resolved]
  - Device placement issue [Recovered/Resolved]

NARRATIVE: CASE EVENT DATE: 20240801
